FAERS Safety Report 6927079-7 (Version None)
Quarter: 2010Q3

REPORT INFORMATION
  Report Type: 
  Country: None (occurrence: None)
  Receive Date: 20100816
  Receipt Date: 20100806
  Transmission Date: 20110219
  Serious: Yes (Hospitalization)
  Sender: FDA-Public Use
  Company Number: FR-AMGEN-US277799

PATIENT
  Sex: Female

DRUGS (4)
  1. ENBREL [Suspect]
     Indication: PRODUCT USED FOR UNKNOWN INDICATION
     Route: 058
     Dates: start: 20071023, end: 20080108
  2. ENBREL [Suspect]
     Indication: PSORIATIC ARTHROPATHY
  3. BI-PROFENID [Concomitant]
     Dosage: 2 DOSES TOTAL DAILY
     Route: 048
     Dates: end: 20080108
  4. BI-PROFENID [Concomitant]
     Dosage: UNKNOWN
     Route: 048
     Dates: start: 20080101

REACTIONS (2)
  - AGRANULOCYTOSIS [None]
  - PYREXIA [None]
